FAERS Safety Report 5033145-6 (Version None)
Quarter: 2006Q2

REPORT INFORMATION
  Report Type: 
  Country: None (occurrence: None)
  Receive Date: 20060505
  Receipt Date: 20060126
  Transmission Date: 20061013
  Serious: Yes (Other)
  Sender: FDA-Public Use
  Company Number: PHEH2006US01414

PATIENT
  Sex: Female

DRUGS (1)
  1. DIOVAN HCT [Suspect]
     Indication: HYPERTENSION
     Dosage: 80MG VAL+12.5MG HCT,QD, ORAL
     Route: 048
     Dates: start: 20000101

REACTIONS (4)
  - BALANCE DISORDER [None]
  - CONTUSION [None]
  - DIZZINESS [None]
  - PLATELET COUNT DECREASED [None]
